FAERS Safety Report 9032378 (Version 2)
Quarter: 2013Q1

REPORT INFORMATION
  Report Type: Spontaneous
  Country: JP (occurrence: JP)
  Receive Date: 20130125
  Receipt Date: 20130211
  Transmission Date: 20140127
  Serious: Yes (Hospitalization)
  Sender: FDA-Public Use
  Company Number: JP-CELGENEUS-087-21880-12083295

PATIENT
  Age: 69 Year
  Sex: Male

DRUGS (5)
  1. REVLIMID [Suspect]
     Indication: PLASMA CELL MYELOMA
     Dosage: 25 MILLIGRAM
     Route: 048
     Dates: start: 20120709, end: 20120730
  2. REVLIMID [Suspect]
     Dosage: 15 MILLIGRAM
     Route: 048
     Dates: start: 20120817, end: 20120830
  3. DECADRON [Suspect]
     Indication: PLASMA CELL MYELOMA
     Dosage: 16.5 MILLIGRAM
     Route: 041
     Dates: start: 20120709, end: 20120830
  4. BAKTAR [Concomitant]
     Indication: INFECTION PROPHYLAXIS
     Dosage: 1 TABLET
     Route: 048
     Dates: start: 20120709
  5. GENINAX [Concomitant]
     Indication: INFECTION PROPHYLAXIS
     Dosage: 400 MILLIGRAM
     Route: 048
     Dates: start: 20120709

REACTIONS (3)
  - Cytomegalovirus infection [Recovered/Resolved]
  - Eosinophilia [Recovering/Resolving]
  - Rash [Recovering/Resolving]
